FAERS Safety Report 7565628-9 (Version None)
Quarter: 2011Q2

REPORT INFORMATION
  Report Type: 
  Country: None (occurrence: None)
  Receive Date: 20110623
  Receipt Date: 20110609
  Transmission Date: 20111010
  Serious: Yes (Other)
  Sender: FDA-Public Use
  Company Number: US-JNJFOC-20110412525

PATIENT
  Sex: Female
  Weight: 26.1 kg

DRUGS (6)
  1. REMICADE [Suspect]
     Indication: CROHN'S DISEASE
     Route: 042
     Dates: start: 20101025
  2. REMICADE [Suspect]
     Route: 042
     Dates: start: 20101108
  3. REMICADE [Suspect]
     Route: 042
     Dates: start: 20110131
  4. REMICADE [Suspect]
     Route: 042
     Dates: start: 20110325
  5. REMICADE [Suspect]
     Route: 042
     Dates: start: 20101206
  6. PENTASA [Concomitant]
     Indication: CROHN'S DISEASE
     Route: 065
     Dates: start: 20100414

REACTIONS (3)
  - MEMORY IMPAIRMENT [None]
  - FEELING ABNORMAL [None]
  - STARING [None]
